FAERS Safety Report 6983720-4 (Version None)
Quarter: 2010Q3

REPORT INFORMATION
  Report Type: 
  Country: None (occurrence: None)
  Receive Date: 20100914
  Receipt Date: 20020314
  Transmission Date: 20110219
  Serious: Yes (Hospitalization)
  Sender: FDA-Public Use
  Company Number: US-WYE-H07132008

PATIENT
  Age: 88 Year
  Sex: Male

DRUGS (9)
  1. IBUPROFEN [Suspect]
     Route: 048
  2. BUMETANIDE [Concomitant]
  3. BUSPIRONE HCL [Concomitant]
  4. OMEPRAZOLE [Concomitant]
  5. FELODIPINE [Concomitant]
  6. ATENOLOL [Concomitant]
  7. CALCIUM CHLORIDE DIHYDRATE [Concomitant]
  8. ACETYLSALICYLIC ACID [Suspect]
     Indication: ANTIPLATELET THERAPY
     Route: 048
  9. DOCUSATE [Concomitant]

REACTIONS (2)
  - MELAENA [None]
  - RECTAL HAEMORRHAGE [None]
